FAERS Safety Report 18915954 (Version 2)
Quarter: 2025Q1

REPORT INFORMATION
  Report Type: Spontaneous
  Country: CA (occurrence: CA)
  Receive Date: 20210219
  Receipt Date: 20250329
  Transmission Date: 20250409
  Serious: Yes (Hospitalization, Other)
  Sender: ALEXION PHARMACEUTICALS
  Company Number: 2021A051542

PATIENT
  Age: 71 Year

DRUGS (1)
  1. CALQUENCE [Suspect]
     Active Substance: ACALABRUTINIB
     Route: 065

REACTIONS (4)
  - Retroperitoneal haemorrhage [Unknown]
  - Blood pressure decreased [Unknown]
  - Haemoglobin abnormal [Unknown]
  - Thrombocytopenia [Unknown]
